FAERS Safety Report 4384088-2 (Version None)
Quarter: 2004Q2

REPORT INFORMATION
  Report Type: 
  Country: None (occurrence: None)
  Receive Date: 20040622
  Receipt Date: 20040622
  Transmission Date: 20050107
  Serious: Yes (Life-Threatening, Hospitalization, Disabling, Other)
  Sender: FDA-Public Use
  Company Number: None

PATIENT
  Age: 57 Year
  Sex: Female
  Weight: 61.2356 kg

DRUGS (1)
  1. CAFERGOT [Suspect]
     Indication: MIGRAINE
     Dosage: MAX OF 2 PER DAY I TOOK 1/4 SUPPOSITORY

REACTIONS (6)
  - DEPRESSED LEVEL OF CONSCIOUSNESS [None]
  - FACIAL PALSY [None]
  - FEELING ABNORMAL [None]
  - GAIT DISTURBANCE [None]
  - HYPOAESTHESIA [None]
  - SENSORY DISTURBANCE [None]
